FAERS Safety Report 11244696 (Version 1)
Quarter: 2015Q3

REPORT INFORMATION
  Report Type: Spontaneous
  Country: AU (occurrence: AU)
  Receive Date: 20150707
  Receipt Date: 20150707
  Transmission Date: 20151125
  Serious: Yes (Other)
  Sender: FDA-Public Use
  Company Number: AU-GUERBET LLC-1040383

PATIENT
  Sex: Female

DRUGS (1)
  1. LIPIODOL [Suspect]
     Active Substance: ETHIODIZED OIL

REACTIONS (7)
  - Bradycardia [Unknown]
  - Coma [Unknown]
  - Nausea [Unknown]
  - Hyperhidrosis [Unknown]
  - Muscle twitching [Unknown]
  - Pallor [Unknown]
  - Hypertension [Unknown]
